FAERS Safety Report 5705770-8 (Version None)
Quarter: 2008Q2

REPORT INFORMATION
  Report Type: 
  Country: None (occurrence: None)
  Receive Date: 20080411
  Receipt Date: 20080401
  Transmission Date: 20081010
  Serious: Yes (Hospitalization)
  Sender: FDA-Public Use
  Company Number: 2008AL001977

PATIENT
  Age: 78 Year
  Sex: Female

DRUGS (8)
  1. METFORMIN HYDROCHLORIDE [Suspect]
     Indication: TYPE 2 DIABETES MELLITUS
     Dosage: 1500 MG; BID
  2. GLYBURIDE [Concomitant]
  3. ROFECOXIB [Concomitant]
  4. FUROSEMIDE [Concomitant]
  5. LEVOTHYROXINE SODIUM [Concomitant]
  6. PREDNISONE [Concomitant]
  7. AZATHIOPRINE [Concomitant]
  8. PROPRANOLOL [Concomitant]

REACTIONS (17)
  - ABDOMINAL PAIN [None]
  - ANOREXIA [None]
  - BLOOD CREATININE INCREASED [None]
  - BLOOD PRESSURE DIASTOLIC DECREASED [None]
  - BLOOD URINE PRESENT [None]
  - HAEMODIALYSIS [None]
  - HEART RATE INCREASED [None]
  - HYPOTHERMIA [None]
  - LACTIC ACIDOSIS [None]
  - METABOLIC ACIDOSIS [None]
  - NAUSEA [None]
  - OEDEMA PERIPHERAL [None]
  - PCO2 DECREASED [None]
  - PROTEIN URINE PRESENT [None]
  - RENAL INJURY [None]
  - RESPIRATORY FAILURE [None]
  - VOMITING [None]
